FAERS Safety Report 20180629 (Version 1)
Quarter: 2021Q4

REPORT INFORMATION
  Report Type: Spontaneous
  Country: US (occurrence: US)
  Receive Date: 20211214
  Receipt Date: 20211214
  Transmission Date: 20220303
  Serious: No
  Sender: FDA-Public Use
  Company Number: US-Global Blood Therapeutics Inc-US-GBT-21-04035

PATIENT
  Sex: Female

DRUGS (1)
  1. OXBRYTA [Suspect]
     Active Substance: VOXELOTOR
     Indication: Sickle cell disease
     Route: 048
     Dates: start: 202108

REACTIONS (6)
  - Oropharyngeal pain [Unknown]
  - Oropharyngeal discomfort [Unknown]
  - Dysphagia [Unknown]
  - Throat tightness [Unknown]
  - Decreased appetite [Not Recovered/Not Resolved]
  - Oral candidiasis [Not Recovered/Not Resolved]
